FAERS Safety Report 22595056 (Version 1)
Quarter: 2023Q2

REPORT INFORMATION
  Report Type: Spontaneous
  Country: US (occurrence: None)
  Receive Date: 20230612
  Receipt Date: 20230612
  Transmission Date: 20230722
  Serious: No
  Sender: FDA-Public Use
  Company Number: None

PATIENT
  Age: 76 Year
  Sex: Male
  Weight: 76.2 kg

DRUGS (21)
  1. ERLOTINIB [Suspect]
     Active Substance: ERLOTINIB
     Indication: Pancreatic carcinoma
     Dosage: FREQUENCY : DAILY;?
     Route: 048
     Dates: start: 202305
  2. CALCIUM [Concomitant]
     Active Substance: CALCIUM
  3. MINERALS\VITAMINS [Concomitant]
     Active Substance: MINERALS\VITAMINS
  4. CHRMIUM PICOLINATE [Concomitant]
  5. CLINDAMYCIN [Concomitant]
     Active Substance: CLINDAMYCIN
  6. CREON [Concomitant]
     Active Substance: PANCRELIPASE AMYLASE\PANCRELIPASE LIPASE\PANCRELIPASE PROTEASE
  7. FAMOTIDINE [Concomitant]
     Active Substance: FAMOTIDINE
  8. FISH OIL [Concomitant]
     Active Substance: FISH OIL
  9. ASIAN GINSENG [Concomitant]
     Active Substance: ASIAN GINSENG
  10. GINKGO [Concomitant]
     Active Substance: GINKGO
  11. LIDOCAINE\PRILOCAINE [Concomitant]
     Active Substance: LIDOCAINE\PRILOCAINE
  12. MAGNESIUM [Concomitant]
     Active Substance: MAGNESIUM
  13. DIETARY SUPPLEMENT\HERBALS\MILK THISTLE [Concomitant]
     Active Substance: MILK THISTLE
  14. NOVOLOG [Concomitant]
     Active Substance: INSULIN ASPART
  15. PROCHLORPERAZINE [Concomitant]
     Active Substance: PROCHLORPERAZINE
  16. CYANOCOBALAMIN\DEXPANTHENOL\NIACINAMIDE\PYRIDOXINE HYDROCHLORIDE\RIBOF [Concomitant]
     Active Substance: CYANOCOBALAMIN\DEXPANTHENOL\NIACINAMIDE\PYRIDOXINE HYDROCHLORIDE\RIBOFLAVIN 5^-PHOSPHATE SODIUM\THIA
  17. TYLENOL [Concomitant]
     Active Substance: ACETAMINOPHEN
  18. VITAMIN C [Concomitant]
     Active Substance: ASCORBIC ACID
  19. VITAMIN D3 [Concomitant]
     Active Substance: CHOLECALCIFEROL
  20. VITAMIN E [Concomitant]
     Active Substance: .ALPHA.-TOCOPHEROL
  21. ZOFRAN [Concomitant]
     Active Substance: ONDANSETRON HYDROCHLORIDE

REACTIONS (4)
  - Fatigue [None]
  - Pain [None]
  - Full blood count abnormal [None]
  - Therapy interrupted [None]
